FAERS Safety Report 6185057-2 (Version None)
Quarter: 2009Q2

REPORT INFORMATION
  Report Type: 
  Country: None (occurrence: None)
  Receive Date: 20090511
  Receipt Date: 20090429
  Transmission Date: 20091009
  Serious: Yes (Hospitalization)
  Sender: FDA-Public Use
  Company Number: BR-JNJFOC-20090500103

PATIENT
  Age: 38 Year
  Sex: Male

DRUGS (5)
  1. REMICADE [Suspect]
     Dosage: TREATMENT WAS INCREASED TO AN UNSPECIFIED DOSAGE
     Route: 042
  2. REMICADE [Suspect]
     Indication: RHEUMATOID ARTHRITIS
     Dosage: ON TREATMENT FOR TWO YEARS
     Route: 042
  3. METHOTREXATE [Concomitant]
  4. PREDNISONE [Concomitant]
  5. CORTICOSTEROIDS [Concomitant]

REACTIONS (7)
  - CONFUSIONAL STATE [None]
  - DIPLOPIA [None]
  - DRUG INEFFECTIVE [None]
  - HEAD DISCOMFORT [None]
  - HYPOAESTHESIA [None]
  - JOINT STIFFNESS [None]
  - RHEUMATOID ARTHRITIS [None]
